FAERS Safety Report 6846353-6 (Version None)
Quarter: 2010Q3

REPORT INFORMATION
  Report Type: 
  Country: None (occurrence: None)
  Receive Date: 20100715
  Receipt Date: 20090728
  Transmission Date: 20110219
  Serious: No
  Sender: FDA-Public Use
  Company Number: US-PFIZER INC-2007077341

PATIENT
  Sex: Male
  Weight: 77.1 kg

DRUGS (3)
  1. CHANTIX [Suspect]
     Dates: start: 20070907, end: 20070915
  2. CLARITIN-D [Concomitant]
     Indication: HYPERSENSITIVITY
  3. CIMETIDINE [Concomitant]
     Indication: HYPERSENSITIVITY

REACTIONS (11)
  - ABDOMINAL DISCOMFORT [None]
  - ABNORMAL DREAMS [None]
  - ACTIVITIES OF DAILY LIVING IMPAIRED [None]
  - ASTHENIA [None]
  - FATIGUE [None]
  - FEELING ABNORMAL [None]
  - GLOSSODYNIA [None]
  - IRRITABILITY [None]
  - ORAL PAIN [None]
  - UNEVALUABLE EVENT [None]
  - VOMITING [None]
